FAERS Safety Report 5118453-2 (Version None)
Quarter: 2006Q4

REPORT INFORMATION
  Report Type: 
  Country: None (occurrence: None)
  Receive Date: 20061002
  Receipt Date: 20060921
  Transmission Date: 20070319
  Serious: Yes (Hospitalization)
  Sender: FDA-Public Use
  Company Number: DE-JNJFOC-20060905656

PATIENT
  Sex: Female

DRUGS (8)
  1. RISPERDAL [Suspect]
     Indication: DRUG USE FOR UNKNOWN INDICATION
     Route: 048
  2. EXELON [Suspect]
     Indication: DEMENTIA
     Dosage: 5-3MG
     Route: 048
  3. COTRIM DS [Suspect]
     Indication: URINARY TRACT INFECTION
     Route: 065
  4. BELOK ZOK [Concomitant]
     Route: 065
  5. ASPIRIN [Concomitant]
     Route: 065
  6. EUTHYROX [Concomitant]
     Route: 065
  7. ZOCOR [Concomitant]
     Route: 065
  8. NYSTATIN [Concomitant]
     Route: 065

REACTIONS (1)
  - LEUKOPENIA [None]
